FAERS Safety Report 8729647 (Version 2)
Quarter: 2012Q4

REPORT INFORMATION
  Report Type: 
  Country: JP (occurrence: JP)
  Receive Date: 20120817
  Receipt Date: 20120920
  Transmission Date: 20130627
  Serious: Yes (Hospitalization, Other)
  Sender: FDA-Public Use
  Company Number: JP-NAPPMUNDI-MAG-2012-0002259

PATIENT
  Age: 61 Year
  Sex: Male

DRUGS (12)
  1. BUPRENORPHINE TRANSDERMAL SYSTEM [Suspect]
     Indication: PAIN
     Dosage: 10 mcg, q1h
     Route: 062
     Dates: start: 20120605, end: 20120628
  2. BUPRENORPHINE TRANSDERMAL SYSTEM [Suspect]
     Dosage: 20 mcg, q1h
     Route: 062
     Dates: start: 20120515, end: 20120522
  3. BUPRENORPHINE TRANSDERMAL SYSTEM [Suspect]
     Dosage: 15 mcg, q1h
     Route: 062
     Dates: start: 20120507, end: 20120514
  4. BUPRENORPHINE TRANSDERMAL SYSTEM [Suspect]
     Dosage: 10 mcg, q1h
     Route: 062
     Dates: start: 20120424, end: 20120506
  5. BUPRENORPHINE TRANSDERMAL SYSTEM [Suspect]
     Dosage: 5 mcg, q1h
     Route: 062
     Dates: start: 20120411, end: 20120423
  6. LENDORMIN [Concomitant]
     Dosage: 0.25 mg, daily
     Route: 048
  7. ARTIST [Concomitant]
     Dosage: 10 mg, daily
     Route: 048
  8. LONGES [Concomitant]
     Dosage: 10 mg, daily
     Route: 048
  9. OMEPRAL /00661201/ [Concomitant]
     Dosage: 10 mg, daily
     Route: 048
  10. DIART [Concomitant]
     Dosage: 60 mg, daily
     Route: 048
  11. ALDACTONE A [Concomitant]
     Dosage: 25 mg, daily
     Route: 048
  12. MEVALOTIN [Suspect]
     Dosage: 10 mg, daily
     Route: 048

REACTIONS (2)
  - Loss of consciousness [Recovered/Resolved]
  - Arrhythmia [Unknown]
